FAERS Safety Report 7201892-3 (Version None)
Quarter: 2011Q1

REPORT INFORMATION
  Report Type: 
  Country: None (occurrence: None)
  Receive Date: 20101229
  Receipt Date: 20101221
  Transmission Date: 20110831
  Serious: Yes (Hospitalization)
  Sender: FDA-Public Use
  Company Number: ES-ASTRAZENECA-2010SE60370

PATIENT
  Age: 13 Year
  Sex: Male

DRUGS (2)
  1. ENTOCORT EC [Suspect]
     Indication: CHRONIC GRANULOMATOUS DISEASE
     Route: 048
     Dates: start: 20100801, end: 20101101
  2. VFEND [Interacting]
     Indication: ASPERGILLOSIS
     Route: 048
     Dates: start: 20100801

REACTIONS (3)
  - DRUG INTERACTION [None]
  - SECONDARY HYPERTENSION [None]
  - CUSHING'S SYNDROME [None]
